FAERS Safety Report 13847138 (Version 9)
Quarter: 2018Q1

REPORT INFORMATION
  Report Type: Spontaneous
  Country: US (occurrence: US)
  Receive Date: 20170808
  Receipt Date: 20180108
  Transmission Date: 20180508
  Serious: Yes (Hospitalization)
  Sender: FDA-Public Use
  Company Number: US-ACTELION-A-US2017-157663

PATIENT
  Age: 44 Year
  Sex: Female
  Weight: 108.84 kg

DRUGS (11)
  1. VELETRI [Suspect]
     Active Substance: EPOPROSTENOL
     Dosage: 30 NG/KG, PER MIN
     Route: 042
  2. OPSUMIT [Concomitant]
     Active Substance: MACITENTAN
     Indication: PULMONARY ARTERIAL HYPERTENSION
     Route: 048
  3. ELAVIL [Concomitant]
     Active Substance: AMITRIPTYLINE HYDROCHLORIDE
  4. VELETRI [Suspect]
     Active Substance: EPOPROSTENOL
     Indication: PULMONARY ARTERIAL HYPERTENSION
     Dosage: 32 NG/KG, PER MIN
     Route: 042
  5. SILDENAFIL CITRATE. [Concomitant]
     Active Substance: SILDENAFIL CITRATE
  6. KLONOPIN [Concomitant]
     Active Substance: CLONAZEPAM
  7. NEURONTIN [Concomitant]
     Active Substance: GABAPENTIN
  8. WARFARIN [Concomitant]
     Active Substance: WARFARIN
  9. LASIX [Concomitant]
     Active Substance: FUROSEMIDE
  10. PROVENTIL [Concomitant]
     Active Substance: ALBUTEROL
  11. ADVAIR HFA [Concomitant]
     Active Substance: FLUTICASONE PROPIONATE\SALMETEROL XINAFOATE

REACTIONS (29)
  - Catheter management [Recovered/Resolved]
  - Asthenia [Recovered/Resolved]
  - Pneumonia [Recovered/Resolved]
  - Pain [Unknown]
  - Petechiae [Unknown]
  - Pyrexia [Recovered/Resolved]
  - Hypoaesthesia [Unknown]
  - Pain of skin [Unknown]
  - Blood culture positive [Recovered/Resolved]
  - Head injury [Unknown]
  - Hypersensitivity [Not Recovered/Not Resolved]
  - Device related sepsis [Recovered/Resolved]
  - Pulmonary congestion [Unknown]
  - Application site burn [Not Recovered/Not Resolved]
  - Catheter site pain [Unknown]
  - Chills [Recovered/Resolved]
  - Device occlusion [Unknown]
  - Fall [Recovered/Resolved]
  - Cough [Unknown]
  - Pain in extremity [Not Recovered/Not Resolved]
  - Rash macular [Unknown]
  - Catheter culture positive [Recovered/Resolved]
  - Pain in jaw [Unknown]
  - Nasopharyngitis [Unknown]
  - Insomnia [Unknown]
  - Device dislocation [Unknown]
  - Migraine [Unknown]
  - Oropharyngeal pain [Unknown]
  - Oxygen saturation decreased [Unknown]

NARRATIVE: CASE EVENT DATE: 20170730
